FAERS Safety Report 10154005 (Version 1)
Quarter: 2014Q2

REPORT INFORMATION
  Report Type: Spontaneous
  Country: US (occurrence: US)
  Receive Date: 20140506
  Receipt Date: 20140506
  Transmission Date: 20141212
  Serious: No
  Sender: FDA-Public Use
  Company Number: US-SHIRE-US201401918

PATIENT
  Age: 40 Year
  Sex: Female
  Weight: 65.31 kg

DRUGS (10)
  1. VYVANSE [Suspect]
     Indication: ATTENTION DEFICIT/HYPERACTIVITY DISORDER
     Dosage: 60 MG, 1X/DAY:QD(IN THE MORNING)
     Route: 048
     Dates: start: 201312
  2. GABAPENTIN [Suspect]
     Indication: NECK INJURY
     Dosage: 300 MG, 1X/DAY:QD
     Route: 048
     Dates: start: 200606, end: 201402
  3. GABAPENTIN [Suspect]
     Indication: BACK INJURY
     Dosage: 300 MG, 2X/DAY:BID
     Route: 065
     Dates: start: 2014, end: 2014
  4. GABAPENTIN [Suspect]
     Dosage: 300 MG, OTHER(TWO CAPSULES EVERY SIX HOURS)
     Route: 048
     Dates: start: 20140407
  5. ZOLOFT [Concomitant]
     Indication: SOCIAL PROBLEM
     Dosage: 150 MG, 1X/DAY:QD
     Route: 048
  6. LAMOTRIGINE [Concomitant]
     Indication: ANGER
     Dosage: 200 MG, 1X/DAY:QD
     Route: 048
     Dates: start: 201308
  7. ZANAFLEX [Concomitant]
     Indication: NECK INJURY
     Dosage: 8 MG (TWO 4 MG), 1X/DAY:QD (BEFORE BED)
     Route: 048
     Dates: start: 200606
  8. ZANAFLEX [Concomitant]
     Indication: BACK INJURY
  9. ENDOCET [Concomitant]
     Indication: NECK INJURY
     Dosage: UNK(5-325 MG), AS REQ^D(ONE TO TWO TABLETS EVERY SIX HOURS AS NEEDED)
     Route: 048
     Dates: start: 200606
  10. ENDOCET [Concomitant]
     Indication: BACK INJURY

REACTIONS (12)
  - Fall [Recovered/Resolved]
  - Post-traumatic neck syndrome [Not Recovered/Not Resolved]
  - Neck injury [Not Recovered/Not Resolved]
  - Back injury [Not Recovered/Not Resolved]
  - Contusion [Recovered/Resolved]
  - Oedema peripheral [Not Recovered/Not Resolved]
  - Peripheral swelling [Not Recovered/Not Resolved]
  - Neuralgia [Not Recovered/Not Resolved]
  - Hypoaesthesia [Not Recovered/Not Resolved]
  - Dysphonia [Not Recovered/Not Resolved]
  - Dysphagia [Not Recovered/Not Resolved]
  - Weight increased [Not Recovered/Not Resolved]
